FAERS Safety Report 12132396 (Version 1)
Quarter: 2016Q1

REPORT INFORMATION
  Report Type: Spontaneous
  Country: US (occurrence: None)
  Receive Date: 20160229
  Receipt Date: 20160229
  Transmission Date: 20160526
  Serious: Yes (Hospitalization)
  Sender: FDA-Public Use
  Company Number: None

PATIENT
  Age: 53 Year
  Sex: Male
  Weight: 63.5 kg

DRUGS (2)
  1. FLUOROURACIL (5-FU) [Suspect]
     Active Substance: FLUOROURACIL
     Dates: end: 20160221
  2. CISPLATIN. [Suspect]
     Active Substance: CISPLATIN
     Dates: end: 20150215

REACTIONS (5)
  - Hypophagia [None]
  - Asthenia [None]
  - Stomatitis [None]
  - Syncope [None]
  - Dehydration [None]

NARRATIVE: CASE EVENT DATE: 20160223
